FAERS Safety Report 25337659 (Version 1)
Quarter: 2025Q2

REPORT INFORMATION
  Report Type: Spontaneous
  Country: US (occurrence: US)
  Receive Date: 20250520
  Receipt Date: 20250520
  Transmission Date: 20250716
  Serious: No
  Sender: MYLAN
  Company Number: US-MYLANLABS-2025M1040783

PATIENT

DRUGS (1)
  1. LISDEXAMFETAMINE DIMESYLATE [Suspect]
     Active Substance: LISDEXAMFETAMINE DIMESYLATE
     Indication: Product used for unknown indication

REACTIONS (8)
  - Visual impairment [Unknown]
  - Migraine [Unknown]
  - Chest discomfort [Unknown]
  - Abdominal pain upper [Unknown]
  - Chest pain [Unknown]
  - Palpitations [Unknown]
  - Headache [Unknown]
  - Product quality issue [Unknown]
